FAERS Safety Report 6360322-4 (Version None)
Quarter: 2009Q3

REPORT INFORMATION
  Report Type: 
  Country: None (occurrence: None)
  Receive Date: 20090917
  Receipt Date: 20090911
  Transmission Date: 20100115
  Serious: Yes (Other)
  Sender: FDA-Public Use
  Company Number: DE-TEVA-209297ISR

PATIENT
  Age: 28 Year
  Sex: Female

DRUGS (3)
  1. COPAXONE [Suspect]
     Indication: MULTIPLE SCLEROSIS
  2. GAMMA HYDROXYBUTYRIC ACID (ECSTASY) [Suspect]
  3. DIAZEPAM [Concomitant]

REACTIONS (3)
  - DYSPNOEA [None]
  - PARALYSIS [None]
  - SWELLING FACE [None]
